FAERS Safety Report 23416311 (Version 1)
Quarter: 2024Q1

REPORT INFORMATION
  Report Type: Spontaneous
  Country: None (occurrence: CZ)
  Receive Date: 20240118
  Receipt Date: 20240118
  Transmission Date: 20240410
  Serious: Yes (Other)
  Sender: FDA-Public Use
  Company Number: CZ-Stallergenes SAS-2151471

PATIENT
  Age: 46 Year
  Sex: Female

DRUGS (1)
  1. ORALAIR [Suspect]
     Active Substance: ANTHOXANTHUM ODORATUM POLLEN\DACTYLIS GLOMERATA POLLEN\LOLIUM PERENNE POLLEN\PHLEUM PRATENSE POLLEN\
     Indication: Conjunctivitis allergic
     Route: 060
     Dates: start: 20220913, end: 20220930

REACTIONS (2)
  - Aphthous ulcer [Recovered/Resolved]
  - Oedema mucosal [Recovered/Resolved]

NARRATIVE: CASE EVENT DATE: 20220914
